FAERS Safety Report 17203431 (Version 1)
Quarter: 2019Q4

REPORT INFORMATION
  Report Type: Spontaneous
  Country: US (occurrence: US)
  Receive Date: 20191226
  Receipt Date: 20191226
  Transmission Date: 20200122
  Serious: No
  Sender: FDA-Public Use
  Company Number: US-ASTRAZENECA-2019SF70337

PATIENT
  Age: 28563 Day
  Sex: Female

DRUGS (2)
  1. BYDUREON [Suspect]
     Active Substance: EXENATIDE
     Route: 065
  2. BYDUREON BCISE [Suspect]
     Active Substance: EXENATIDE
     Route: 065

REACTIONS (10)
  - Sinus disorder [Not Recovered/Not Resolved]
  - Malaise [Unknown]
  - Incorrect dose administered [Not Recovered/Not Resolved]
  - Visual impairment [Unknown]
  - Laryngitis [Not Recovered/Not Resolved]
  - Sensitive skin [Unknown]
  - Device issue [Unknown]
  - Dysphonia [Not Recovered/Not Resolved]
  - Memory impairment [Not Recovered/Not Resolved]
  - Pain [Unknown]

NARRATIVE: CASE EVENT DATE: 20191126
